FAERS Safety Report 6638012-X (Version None)
Quarter: 2010Q1

REPORT INFORMATION
  Report Type: 
  Country: None (occurrence: None)
  Receive Date: 20100317
  Receipt Date: 20100312
  Transmission Date: 20100710
  Serious: Yes (Hospitalization)
  Sender: FDA-Public Use
  Company Number: US-GILEAD-2010-0027056

PATIENT
  Sex: Female
  Weight: 84.262 kg

DRUGS (10)
  1. LETAIRIS [Suspect]
     Indication: PULMONARY ARTERIAL HYPERTENSION
     Route: 048
     Dates: start: 20100115
  2. COUMADIN [Concomitant]
  3. LASIX [Concomitant]
  4. LOPRESSOR [Concomitant]
  5. FLECAINIDE [Concomitant]
  6. NORVASC [Concomitant]
  7. VITAMIN B COMPLEX CAP [Concomitant]
  8. VITAMIN B-12 [Concomitant]
  9. VICODIN [Concomitant]
  10. SYNTHROID [Concomitant]

REACTIONS (3)
  - ATRIAL FIBRILLATION [None]
  - DEHYDRATION [None]
  - PNEUMONIA [None]
